FAERS Safety Report 21174900 (Version 1)
Quarter: 2022Q3

REPORT INFORMATION
  Report Type: Spontaneous
  Country: US (occurrence: None)
  Receive Date: 20220805
  Receipt Date: 20220805
  Transmission Date: 20221026
  Serious: No
  Sender: FDA-Public Use
  Company Number: US-ROCHE-3073752

PATIENT
  Sex: Male
  Weight: 78.088 kg

DRUGS (1)
  1. ROZLYTREK [Suspect]
     Active Substance: ENTRECTINIB
     Indication: Product used for unknown indication
     Dosage: ONGOING: YES
     Route: 065

REACTIONS (4)
  - Product complaint [Unknown]
  - Product complaint [Unknown]
  - Product administration error [Unknown]
  - No adverse event [Unknown]
